FAERS Safety Report 5884427-7 (Version None)
Quarter: 2008Q3

REPORT INFORMATION
  Report Type: 
  Country: None (occurrence: None)
  Receive Date: 20080915
  Receipt Date: 20080905
  Transmission Date: 20090109
  Serious: Yes (Other)
  Sender: FDA-Public Use
  Company Number: US-PFIZER INC-2008074487

PATIENT
  Sex: Female
  Weight: 58.1 kg

DRUGS (4)
  1. CELEBREX [Suspect]
     Indication: ARTHRITIS
  2. TYLENOL (CAPLET) [Concomitant]
  3. METOPROLOL TARTRATE [Concomitant]
  4. TRAMADOL HCL [Concomitant]
     Indication: PAIN

REACTIONS (3)
  - BODY HEIGHT DECREASED [None]
  - NASAL POLYPS [None]
  - SINUSITIS [None]
